FAERS Safety Report 24362369 (Version 1)
Quarter: 2024Q3

REPORT INFORMATION
  Report Type: Spontaneous
  Country: US (occurrence: None)
  Receive Date: 20240925
  Receipt Date: 20240925
  Transmission Date: 20241017
  Serious: No
  Sender: Public
  Company Number: None

PATIENT
  Age: 79 Year
  Sex: Male

DRUGS (1)
  1. ALECENSA [Suspect]
     Active Substance: ALECTINIB HYDROCHLORIDE

REACTIONS (6)
  - Dyspnoea [None]
  - Pain [None]
  - Hypoxia [None]
  - Respiratory failure [None]
  - Failure to thrive [None]
  - Therapy cessation [None]

NARRATIVE: CASE EVENT DATE: 20240919
